FAERS Safety Report 7937313-2 (Version None)
Quarter: 2011Q4

REPORT INFORMATION
  Report Type: 
  Country: None (occurrence: None)
  Receive Date: 20111123
  Receipt Date: 20111116
  Transmission Date: 20120403
  Serious: No
  Sender: FDA-Public Use
  Company Number: AU-B.I. PHARMACEUTICALS,INC./RIDGEFIELD-2011-AU-01695AU

PATIENT
  Sex: Female
  Weight: 62 kg

DRUGS (7)
  1. PRADAXA [Suspect]
     Indication: ATRIAL FIBRILLATION
     Dosage: 220 MG
     Dates: start: 20110701, end: 20110817
  2. TEVETEN HCT [Concomitant]
     Dosage: 600/12.5 MG
  3. ZIMSTAT [Concomitant]
     Dosage: 40 MG
  4. PANADOL OSTEO [Concomitant]
  5. PROCHLORPERAZINE [Concomitant]
  6. WARFARIN SODIUM [Suspect]
  7. LEVOTHYROXINE SODIUM [Concomitant]
     Dosage: 50 MCG

REACTIONS (3)
  - DEPRESSION [None]
  - DIZZINESS [None]
  - SOMNOLENCE [None]
